FAERS Safety Report 7521441-X (Version None)
Quarter: 2011Q2

REPORT INFORMATION
  Report Type: 
  Country: None (occurrence: None)
  Receive Date: 20110603
  Receipt Date: 20101228
  Transmission Date: 20111010
  Serious: Yes (Hospitalization, Other)
  Sender: FDA-Public Use
  Company Number: US-BAYER-201029567NA

PATIENT
  Age: 42 Year
  Sex: Female
  Weight: 53.061 kg

DRUGS (34)
  1. YASMIN [Suspect]
     Dosage: UNK
     Dates: start: 20050101, end: 20070701
  2. SULFAMETHOXAZOLE AND TRIMETHOPRIM [Concomitant]
  3. WARFARIN SODIUM [Concomitant]
     Dosage: 5 MG, UNK
  4. AMITRIPTYLINE HCL [Concomitant]
     Dosage: 10 MG, BID
  5. ADVIL LIQUI-GELS [Concomitant]
     Dosage: 400 MG, UNK
     Route: 048
  6. YASMIN [Suspect]
     Dosage: UNK
     Dates: start: 20061227, end: 20071004
  7. PROPOXYPHENE NAPSYLATE W/ ACETAMINOPHEN [Concomitant]
  8. FLUCONAZOLE [Concomitant]
     Dosage: 150 MG, UNK
  9. HYDROCODONE BITARTRATE AND ACETAMINOPHEN [Concomitant]
  10. ASCORBIC ACID [Concomitant]
  11. ERY-TAB [Concomitant]
     Dosage: 250 MG, UNK
  12. TERCONAZOLE [Concomitant]
     Dosage: 0.8 %, UNK
  13. SERTRALINE HYDROCHLORIDE [Concomitant]
     Dosage: 50 MG, UNK
  14. EFFEXOR [Concomitant]
     Indication: ANXIETY
  15. BACLOFEN [Concomitant]
     Dosage: 100 MG, PRN
     Route: 048
  16. CEPHALEXIN [Concomitant]
     Dosage: 500 MG, UNK
  17. VITAMIN D [Concomitant]
     Dosage: UNK UNK, BIW
  18. PROMETHAZINE [Concomitant]
     Dosage: 25 MG, UNK
  19. NAPROSYN [Concomitant]
     Indication: ARTHRITIS
     Dosage: 500 MG, UNK
  20. AZITHROMYCIN [Concomitant]
     Dosage: 500 MG, UNK
  21. FLUTICASONE PROPIONATE [Concomitant]
  22. PENICILLIN VK [Concomitant]
     Dosage: 250 MG, UNK
  23. AMBIEN CR [Concomitant]
     Dosage: 12.5 MG, UNK
  24. LEXAPRO [Concomitant]
     Dosage: 100 MG, UNK
     Route: 048
  25. YASMIN [Suspect]
     Indication: CONTRACEPTION
     Dosage: UNK UNK, QD
     Route: 048
     Dates: start: 20050101, end: 20080701
  26. ALBUTEROL SULFATE AUTOHALER [Concomitant]
     Dosage: 90 UNK, UNK
  27. ZOLOFT [Concomitant]
     Dosage: UNK UNK, QD
     Route: 048
  28. EFFEXOR [Concomitant]
     Indication: STRESS
     Dosage: UNK
     Dates: start: 19990101, end: 20070101
  29. CIPROFLOXACIN [Concomitant]
     Dosage: 500 MG, UNK
  30. NYSTATIN [Concomitant]
  31. KETOCONAZOLE [Concomitant]
     Dosage: 2 %, UNK
  32. TRIAMCINOLONE [Concomitant]
     Dosage: 0.1 %, UNK
  33. TRAZODONE HCL [Concomitant]
     Dosage: 100 MG, UNK
  34. CHLORTAMITON [Concomitant]
     Dosage: UNK UNK, BID

REACTIONS (3)
  - CEREBROVASCULAR ACCIDENT [None]
  - TRANSIENT ISCHAEMIC ATTACK [None]
  - ARTERY DISSECTION [None]
